FAERS Safety Report 21731560 (Version 1)
Quarter: 2022Q4

REPORT INFORMATION
  Report Type: Spontaneous
  Country: US (occurrence: US)
  Receive Date: 20221215
  Receipt Date: 20221215
  Transmission Date: 20230112
  Serious: Yes (Hospitalization, Other)
  Sender: FDA-Public Use
  Company Number: US-STRIDES ARCOLAB LIMITED-2022SP016516

PATIENT
  Age: 63 Year
  Sex: Female

DRUGS (10)
  1. PREDNISOLONE [Suspect]
     Active Substance: PREDNISOLONE
     Indication: Behcet^s syndrome
     Dosage: 16 MILLIGRAM (DAILY)
     Route: 048
  2. PREDNISOLONE [Suspect]
     Active Substance: PREDNISOLONE
     Indication: T-cell lymphoma
     Dosage: 1.5 MILLIGRAM (NIGHTLY)
     Route: 048
  3. PREDNISOLONE [Suspect]
     Active Substance: PREDNISOLONE
     Dosage: UNK, CYCLICAL ( EPOCH COMBINATION CHEMOTHERAPY REGIMEN)
     Route: 065
  4. ETOPOSIDE [Suspect]
     Active Substance: ETOPOSIDE
     Indication: T-cell lymphoma
     Dosage: UNK , CYCLICAL ( EPOCH COMBINATION CHEMOTHERAPY REGIMEN)
     Route: 065
  5. DOXORUBICIN [Suspect]
     Active Substance: DOXORUBICIN
     Indication: T-cell lymphoma
     Dosage: UNK, CYCLICAL ( EPOCH COMBINATION CHEMOTHERAPY REGIMEN)
     Route: 065
  6. AZATHIOPRINE [Suspect]
     Active Substance: AZATHIOPRINE
     Indication: Behcet^s syndrome
     Dosage: UNK (DAILY)
     Route: 065
  7. AZATHIOPRINE [Suspect]
     Active Substance: AZATHIOPRINE
     Dosage: 100 MILLIGRAM, (TWICE DAILY)
     Route: 048
  8. AZATHIOPRINE [Suspect]
     Active Substance: AZATHIOPRINE
     Dosage: 50 MILLIGRAM, (TWICE DAILY) (DOSE REDUCED)
     Route: 065
  9. VINCRISTINE [Suspect]
     Active Substance: VINCRISTINE
     Indication: T-cell lymphoma
     Dosage: UNK, CYCLICAL ( EPOCH COMBINATION CHEMOTHERAPY REGIMEN)
     Route: 065
  10. CYCLOPHOSPHAMIDE [Suspect]
     Active Substance: CYCLOPHOSPHAMIDE
     Indication: T-cell lymphoma
     Dosage: UNK CYCLICAL ( EPOCH COMBINATION CHEMOTHERAPY REGIMEN)
     Route: 065

REACTIONS (7)
  - T-cell lymphoma [Unknown]
  - Myelosuppression [Unknown]
  - Cytomegalovirus infection [Unknown]
  - Fungal infection [Unknown]
  - Clostridium colitis [Unknown]
  - Sepsis [Unknown]
  - Off label use [Unknown]
